FAERS Safety Report 6261141-X (Version None)
Quarter: 2009Q3

REPORT INFORMATION
  Report Type: 
  Country: None (occurrence: None)
  Receive Date: 20090709
  Receipt Date: 20081229
  Transmission Date: 20100115
  Serious: No
  Sender: FDA-Public Use
  Company Number: US-KINGPHARMUSA00001-K200801458

PATIENT
  Sex: Female
  Weight: 84.354 kg

DRUGS (3)
  1. LEVOXYL [Suspect]
     Indication: HYPOTHYROIDISM
     Dosage: 100 MCG, UNK
     Dates: start: 20081001, end: 20081101
  2. LEVOXYL [Suspect]
     Dosage: 50 MCG, UNK
     Dates: start: 20080101, end: 20080101
  3. LEVOXYL [Suspect]
     Dosage: 12.5 MCG, UNK
     Dates: start: 20080101, end: 20080101

REACTIONS (5)
  - CHEST DISCOMFORT [None]
  - FEELING ABNORMAL [None]
  - HYPERTHYROIDISM [None]
  - POLLAKIURIA [None]
  - TACHYCARDIA [None]
